FAERS Safety Report 17964562 (Version 3)
Quarter: 2020Q3

REPORT INFORMATION
  Report Type: Spontaneous
  Country: US (occurrence: US)
  Receive Date: 20200630
  Receipt Date: 20200827
  Transmission Date: 20201103
  Serious: No
  Sender: FDA-Public Use
  Company Number: US-LEXICON PHARMACEUTICALS, INC-20-1606-00503

PATIENT
  Age: 63 Year
  Sex: Female

DRUGS (5)
  1. HYDROCODONE [Concomitant]
     Active Substance: HYDROCODONE
  2. XERMELO [Suspect]
     Active Substance: TELOTRISTAT ETHYL
     Indication: CARCINOID TUMOUR
     Dates: start: 20200520
  3. SANDOSTATIN [Concomitant]
     Active Substance: OCTREOTIDE ACETATE
  4. CHEMOTHERAPY [Suspect]
     Active Substance: UNSPECIFIED INGREDIENT
  5. ACETAMINOPHEN. [Concomitant]
     Active Substance: ACETAMINOPHEN

REACTIONS (6)
  - Weight decreased [Unknown]
  - Nausea [Unknown]
  - Constipation [Unknown]
  - Blood glucose increased [Unknown]
  - Biopsy [Unknown]
  - Migraine [Unknown]

NARRATIVE: CASE EVENT DATE: 202008
